FAERS Safety Report 21521328 (Version 1)
Quarter: 2022Q4

REPORT INFORMATION
  Report Type: Spontaneous
  Country: DK (occurrence: DK)
  Receive Date: 20221028
  Receipt Date: 20221028
  Transmission Date: 20230113
  Serious: Yes (Other)
  Sender: FDA-Public Use
  Company Number: DK-DKMA-WBS-0028875

PATIENT
  Sex: Male

DRUGS (4)
  1. HUMIRA [Suspect]
     Active Substance: ADALIMUMAB
     Indication: Inflammation
     Route: 058
     Dates: start: 201702, end: 201803
  2. HUMIRA [Suspect]
     Active Substance: ADALIMUMAB
     Route: 058
     Dates: start: 201809
  3. IMRALDI [Suspect]
     Active Substance: ADALIMUMAB
     Indication: Crohn^s disease
     Dosage: STRENGTH: 40 MG
     Route: 065
     Dates: start: 201812, end: 20210108
  4. IRON ISOMALTOSIDE 1000 [Concomitant]
     Active Substance: IRON ISOMALTOSIDE 1000
     Indication: Iron deficiency
     Dates: start: 20180507

REACTIONS (4)
  - Pulmonary function test decreased [Unknown]
  - Dyspnoea exertional [Not Recovered/Not Resolved]
  - Pulmonary pain [Not Recovered/Not Resolved]
  - Interstitial lung disease [Not Recovered/Not Resolved]

NARRATIVE: CASE EVENT DATE: 20201101
